FAERS Safety Report 7825112-1 (Version None)
Quarter: 2011Q4

REPORT INFORMATION
  Report Type: 
  Country: None (occurrence: None)
  Receive Date: 20111019
  Receipt Date: 20101101
  Transmission Date: 20120403
  Serious: No
  Sender: FDA-Public Use
  Company Number: US-BRISTOL-MYERS SQUIBB COMPANY-15363815

PATIENT
  Age: 82 Year
  Sex: Female
  Weight: 77 kg

DRUGS (1)
  1. AVALIDE [Suspect]
     Dosage: STARTED 3 TO 4 MONTHS AGO.

REACTIONS (1)
  - BLOOD UREA INCREASED [None]
